FAERS Safety Report 25875010 (Version 2)
Quarter: 2025Q4

REPORT INFORMATION
  Report Type: Spontaneous
  Country: CN (occurrence: CN)
  Receive Date: 20251002
  Receipt Date: 20251014
  Transmission Date: 20260117
  Serious: Yes (Death)
  Sender: ABBVIE
  Company Number: CN-PFIZER INC-PV202500116232

PATIENT
  Age: 86 Year
  Sex: Female

DRUGS (7)
  1. AVIBACTAM SODIUM\CEFTAZIDIME [Suspect]
     Active Substance: AVIBACTAM SODIUM\CEFTAZIDIME
     Indication: Klebsiella infection
     Dosage: 2.5 G, 3X/DAY, EVERY 8 HRS
     Route: 041
     Dates: start: 20250912, end: 20250915
  2. AVIBACTAM SODIUM\CEFTAZIDIME [Suspect]
     Active Substance: AVIBACTAM SODIUM\CEFTAZIDIME
     Indication: Klebsiella infection
     Dosage: 1.25 G, 3X/DAY, EVERY 8 HRS
     Route: 041
     Dates: start: 20250915, end: 20250917
  3. AVIBACTAM SODIUM\CEFTAZIDIME [Suspect]
     Active Substance: AVIBACTAM SODIUM\CEFTAZIDIME
     Indication: Klebsiella infection
     Dosage: 2.5 G, 2X/DAY, EVERY 12 HRS
     Route: 041
     Dates: start: 20250918, end: 20250921
  4. MEROPENEM [Concomitant]
     Active Substance: MEROPENEM
     Indication: Product used for unknown indication
  5. Lyophilized recombinant human brain natriuretic peptide [Concomitant]
     Indication: Product used for unknown indication
  6. Anisodamine hydrobromide [Concomitant]
     Indication: Product used for unknown indication
  7. LINEZOLID [Concomitant]
     Active Substance: LINEZOLID
     Indication: Product used for unknown indication

REACTIONS (2)
  - Renal failure [Fatal]
  - Multimorbidity [Fatal]

NARRATIVE: CASE EVENT DATE: 20250921
